FAERS Safety Report 13395684 (Version 1)
Quarter: 2017Q2

REPORT INFORMATION
  Report Type: Spontaneous
  Country: US (occurrence: US)
  Receive Date: 20170401
  Receipt Date: 20170401
  Transmission Date: 20170830
  Serious: Yes (Disabling)
  Sender: FDA-Public Use
  Company Number: None

PATIENT
  Age: 6 Year
  Sex: Male
  Weight: 18 kg

DRUGS (2)
  1. MIRALAX [Suspect]
     Active Substance: POLYETHYLENE GLYCOL 3350
     Indication: CONSTIPATION
     Dates: start: 20140625, end: 20170215
  2. DIGESTIVE ADVANTAGE PROBIOTIC GUMMIES PLUS FIBER [Concomitant]

REACTIONS (4)
  - Depression [None]
  - Constipation [None]
  - Anal incontinence [None]
  - Mental disorder [None]

NARRATIVE: CASE EVENT DATE: 20140625
